FAERS Safety Report 5024916-0 (Version None)
Quarter: 2006Q2

REPORT INFORMATION
  Report Type: 
  Country: None (occurrence: None)
  Receive Date: 20060607
  Receipt Date: 20060524
  Transmission Date: 20061013
  Serious: Yes (Hospitalization)
  Sender: FDA-Public Use
  Company Number: US017652

PATIENT
  Age: 73 Year
  Sex: Male

DRUGS (9)
  1. TRISENOX [Suspect]
     Indication: ACUTE PROMYELOCYTIC LEUKAEMIA
     Dosage: 8.625 MG QD INTRAVENOUS DRIP
     Route: 041
     Dates: start: 20051228, end: 20060222
  2. ALLOPURINOL [Suspect]
     Dosage: 600 MG QD ORAL
     Route: 048
     Dates: start: 20051228, end: 20060103
  3. GABEXATE MESILATE [Concomitant]
  4. CEFEPIME DIHYDROCHLORIDE [Concomitant]
  5. ACYCLOVIR [Concomitant]
  6. LIDOCAINE [Concomitant]
  7. MEXILETINE HYDROCHLORIDE [Concomitant]
  8. OSELTAMIVIR PHOSPHATE [Concomitant]
  9. MEROPENEM TRIHYDRATE [Concomitant]

REACTIONS (5)
  - ACTIVATED PARTIAL THROMBOPLASTIN TIME PROLONGED [None]
  - CEREBRAL HAEMORRHAGE [None]
  - DISEASE PROGRESSION [None]
  - FIBRIN D DIMER INCREASED [None]
  - WHITE BLOOD CELL COUNT DECREASED [None]
